FAERS Safety Report 14575641 (Version 1)
Quarter: 2018Q1

REPORT INFORMATION
  Report Type: Spontaneous
  Country: US (occurrence: US)
  Receive Date: 20180227
  Receipt Date: 20180227
  Transmission Date: 20180509
  Serious: No
  Sender: FDA-Public Use
  Company Number: US-BRISTOL-MYERS SQUIBB COMPANY-BMS-2018-018352

PATIENT
  Sex: Male

DRUGS (1)
  1. SPRYCEL [Suspect]
     Active Substance: DASATINIB
     Indication: CHRONIC MYELOID LEUKAEMIA
     Dosage: FREQUENCY:DAILY
     Route: 048

REACTIONS (6)
  - Nausea [Unknown]
  - Vomiting [Unknown]
  - Headache [Unknown]
  - Bone pain [Unknown]
  - Diarrhoea [Unknown]
  - Fatigue [Unknown]
